FAERS Safety Report 9393574 (Version 3)
Quarter: 2013Q4

REPORT INFORMATION
  Report Type: Report from Study
  Country: AU (occurrence: AU)
  Receive Date: 20130710
  Receipt Date: 20131003
  Transmission Date: 20140711
  Serious: Yes (Other)
  Sender: FDA-Public Use
  Company Number: AU-GLAXOSMITHKLINE-A0941611C

PATIENT
  Age: 31 Year
  Sex: Male
  Weight: 92 kg

DRUGS (3)
  1. DABRAFENIB [Suspect]
     Indication: METASTATIC MALIGNANT MELANOMA
     Route: 048
     Dates: start: 20110119
  2. TRAMETINIB [Suspect]
     Indication: METASTATIC MALIGNANT MELANOMA
     Dosage: 1MG PER DAY
     Route: 048
     Dates: start: 20110119
  3. BISOPROLOL [Concomitant]
     Indication: PROPHYLAXIS
     Dosage: 1.25MG PER DAY
     Route: 048

REACTIONS (1)
  - Ejection fraction decreased [Recovered/Resolved]
